FAERS Safety Report 4546641-2 (Version None)
Quarter: 2005Q1

REPORT INFORMATION
  Report Type: 
  Country: None (occurrence: None)
  Receive Date: 20050103
  Receipt Date: 20041214
  Transmission Date: 20050727
  Serious: Yes (Life-Threatening, Hospitalization)
  Sender: FDA-Public Use
  Company Number: EWC041241858

PATIENT
  Age: 65 Year
  Sex: Male

DRUGS (2)
  1. CIALIS [Suspect]
     Indication: ERECTILE DYSFUNCTION
     Dosage: 20 MG AS NEEDED
     Dates: start: 20041008, end: 20041029
  2. SELO-ZOK (METOPRLOL SUCCINATE) [Concomitant]

REACTIONS (1)
  - VENTRICULAR FIBRILLATION [None]
